FAERS Safety Report 13845279 (Version 1)
Quarter: 2017Q3

REPORT INFORMATION
  Report Type: Spontaneous
  Country: FR (occurrence: FR)
  Receive Date: 20170808
  Receipt Date: 20170808
  Transmission Date: 20171127
  Serious: Yes (Hospitalization, Other)
  Sender: FDA-Public Use
  Company Number: FR-PFIZER INC-2017333419

PATIENT
  Age: 63 Year
  Sex: Male

DRUGS (14)
  1. XANAX [Suspect]
     Active Substance: ALPRAZOLAM
     Dosage: 0.5 MG, 3X/DAY
     Route: 048
     Dates: start: 20170713
  2. TRAZODONE [Suspect]
     Active Substance: TRAZODONE HYDROCHLORIDE
     Dosage: 250 MG, DAILY (100 MG IN THE MORNING, 50 MG AT NOON AND 100 MG IN THE EVENING)
     Route: 048
     Dates: start: 20170703, end: 20170704
  3. LYRICA [Concomitant]
     Active Substance: PREGABALIN
     Indication: FRONTOTEMPORAL DEMENTIA
     Dosage: 25 MG, SINGLE
     Route: 048
     Dates: start: 20170707, end: 20170708
  4. TERCIAN /00759301/ [Suspect]
     Active Substance: CYAMEMAZINE
     Dosage: 20 GTT, DAILY (5 DROPS IN THE MORNING, 10 DROPS AT NOON AND 5 DROPS IN THE EVENING)
     Route: 048
     Dates: start: 20170709, end: 20170709
  5. LYRICA [Concomitant]
     Active Substance: PREGABALIN
     Dosage: 50 MG, 3X/DAY
     Route: 048
     Dates: start: 20170713, end: 20170717
  6. TRAZODONE [Suspect]
     Active Substance: TRAZODONE HYDROCHLORIDE
     Indication: FRONTOTEMPORAL DEMENTIA
     Dosage: 100 MG, 3X/DAY
     Route: 048
     Dates: start: 201704, end: 20170702
  7. TERCIAN /00759301/ [Suspect]
     Active Substance: CYAMEMAZINE
     Dosage: 5 GTT, 3X/DAY
     Route: 048
     Dates: start: 20170710, end: 20170711
  8. LYRICA [Concomitant]
     Active Substance: PREGABALIN
     Dosage: 25 MG, 3X/DAY
     Route: 048
     Dates: start: 20170709, end: 20170712
  9. XANAX [Suspect]
     Active Substance: ALPRAZOLAM
     Indication: FRONTOTEMPORAL DEMENTIA
     Dosage: 0.5 MG, 1X/DAY
     Route: 048
     Dates: start: 2017
  10. TERCIAN /00759301/ [Suspect]
     Active Substance: CYAMEMAZINE
     Indication: FRONTOTEMPORAL DEMENTIA
     Dosage: 5 GTT, 3X/DAY
     Route: 048
     Dates: start: 20170704, end: 20170708
  11. XANAX [Suspect]
     Active Substance: ALPRAZOLAM
     Dosage: 0.5 MG, 2X/DAY
     Route: 048
     Dates: start: 20170707, end: 20170707
  12. XANAX [Suspect]
     Active Substance: ALPRAZOLAM
     Dosage: 0.5 MG, 1X/DAY (AT NOON)
     Route: 048
     Dates: start: 20170710, end: 20170710
  13. XANAX [Suspect]
     Active Substance: ALPRAZOLAM
     Dosage: 0.5 MG, 3X/DAY
     Route: 048
     Dates: start: 20170708, end: 20170709
  14. TRAZODONE [Suspect]
     Active Substance: TRAZODONE HYDROCHLORIDE
     Dosage: 300 MG, DAILY (100 MG IN THE MORNING, 100 MG AT NOON AND 100 MG IN THE EVENING)
     Route: 048
     Dates: start: 20170705

REACTIONS (4)
  - Craniocerebral injury [Unknown]
  - Vomiting [Unknown]
  - Seizure [Recovered/Resolved]
  - Agitation [Unknown]

NARRATIVE: CASE EVENT DATE: 20170711
